FAERS Safety Report 16801837 (Version 3)
Quarter: 2020Q3

REPORT INFORMATION
  Report Type: Spontaneous
  Country: US (occurrence: US)
  Receive Date: 20190912
  Receipt Date: 20200702
  Transmission Date: 20201102
  Serious: No
  Sender: FDA-Public Use
  Company Number: US-SA-2019SA254756

PATIENT

DRUGS (1)
  1. DUPIXENT [Suspect]
     Active Substance: DUPILUMAB
     Dosage: 300 MG, OTHER
     Route: 058
     Dates: start: 201908

REACTIONS (4)
  - Feeling hot [Unknown]
  - Fungal infection [Unknown]
  - Genital rash [Unknown]
  - Cold sweat [Unknown]

NARRATIVE: CASE EVENT DATE: 2019
